FAERS Safety Report 6642064-0 (Version None)
Quarter: 2010Q1

REPORT INFORMATION
  Report Type: 
  Country: None (occurrence: None)
  Receive Date: 20100319
  Receipt Date: 20100309
  Transmission Date: 20100710
  Serious: Yes (Other)
  Sender: FDA-Public Use
  Company Number: PHEH2010US02781

PATIENT
  Sex: Female
  Weight: 47.8 kg

DRUGS (5)
  1. EXJADE [Suspect]
     Indication: IRON OVERLOAD
     Dosage: 750 MG QD
     Route: 048
     Dates: start: 20080130
  2. KEPPRA [Concomitant]
     Dosage: 1200 MG, BID
     Route: 048
  3. CLONIDINE [Concomitant]
     Dosage: 0.1 MG Q12HR + Q6HR PRN
     Route: 048
  4. NIFEDIPINE [Concomitant]
     Dosage: 10 MG Q2-4HRS PRN BP OVER 140/90
     Route: 048
  5. PEN-VEE K [Concomitant]
     Dosage: 250 MG, BID
     Route: 048

REACTIONS (1)
  - NEPHRECTOMY [None]
